FAERS Safety Report 4611686-0 (Version None)
Quarter: 2005Q2

REPORT INFORMATION
  Report Type: 
  Country: None (occurrence: None)
  Receive Date: 20050311
  Receipt Date: 20041130
  Transmission Date: 20051028
  Serious: No
  Sender: FDA-Public Use
  Company Number: 2004-BP-13272BP

PATIENT
  Age: 72 Year
  Sex: Female

DRUGS (14)
  1. SPIRIVA [Suspect]
     Indication: CHRONIC OBSTRUCTIVE PULMONARY DISEASE
     Dosage: 18 MCG (18 MCG), IH
     Route: 055
     Dates: start: 20040901, end: 20041202
  2. ADVAIR DISKUS 100/50 [Suspect]
     Indication: CHRONIC OBSTRUCTIVE PULMONARY DISEASE
  3. ALBUTEROL [Concomitant]
  4. DIAZEPAM [Concomitant]
  5. GLUCOTROL [Concomitant]
  6. LASIX (LASIX [Concomitant]
  7. LIPITOR (ATORVASTATIN) [Concomitant]
  8. PROMETHAZINE [Concomitant]
  9. VERAPAMIL [Concomitant]
  10. DIOVAN [Concomitant]
  11. KCL (POTASSIUM CHLORIDE) [Concomitant]
  12. NEXIUM [Concomitant]
  13. ZETIA [Concomitant]
  14. ZELNORM [Concomitant]

REACTIONS (2)
  - DYSPHONIA [None]
  - PHARYNGOLARYNGEAL PAIN [None]
